FAERS Safety Report 25816035 (Version 1)
Quarter: 2025Q3

REPORT INFORMATION
  Report Type: Spontaneous
  Country: US (occurrence: US)
  Receive Date: 20250918
  Receipt Date: 20250918
  Transmission Date: 20251021
  Serious: No
  Sender: BRISTOL-MYERS SQUIBB COMPANY
  Company Number: US-BRISTOL-MYERS SQUIBB COMPANY-2025-128563

PATIENT
  Age: 70 Year
  Sex: Male

DRUGS (1)
  1. ORENCIA [Suspect]
     Active Substance: ABATACEPT
     Indication: Rheumatoid arthritis
     Dosage: CODE UNIT: 125 MG/ML EVERY 7 DAYS
     Dates: start: 202508

REACTIONS (2)
  - Joint swelling [Unknown]
  - Arthralgia [Unknown]
